FAERS Safety Report 13928732 (Version 2)
Quarter: 2017Q3

REPORT INFORMATION
  Report Type: Spontaneous
  Country: US (occurrence: US)
  Receive Date: 20170901
  Receipt Date: 20170912
  Transmission Date: 20171127
  Serious: Yes (Death, Hospitalization, Other)
  Sender: FDA-Public Use
  Company Number: US-CIPLA LTD.-2017US15271

PATIENT

DRUGS (9)
  1. CARBOPLATIN. [Suspect]
     Active Substance: CARBOPLATIN
     Indication: TESTICULAR GERM CELL TUMOUR
     Dosage: UNK, 2 CYCLES
     Route: 065
     Dates: start: 201509, end: 201511
  2. PACLITAXEL. [Suspect]
     Active Substance: PACLITAXEL
     Indication: TESTICULAR GERM CELL CANCER METASTATIC
     Dosage: UNK, TWO CYCLES
     Route: 065
     Dates: start: 201604
  3. IFOSFAMIDE. [Suspect]
     Active Substance: IFOSFAMIDE
     Indication: TESTICULAR GERM CELL TUMOUR
     Dosage: UNK, 4 CYCLES
     Route: 065
     Dates: start: 201501
  4. PEMBROLIZUMAB. [Suspect]
     Active Substance: PEMBROLIZUMAB
     Indication: TESTICULAR GERM CELL CANCER METASTATIC
     Dosage: 200 MG, UNK
     Route: 042
     Dates: start: 201603
  5. OXALIPLATIN. [Suspect]
     Active Substance: OXALIPLATIN
     Indication: TESTICULAR GERM CELL TUMOUR
     Dosage: UNK
     Route: 065
     Dates: start: 201601
  6. CISPLATIN. [Suspect]
     Active Substance: CISPLATIN
     Indication: TESTICULAR GERM CELL TUMOUR
     Dosage: UNK, 4 CYCLES
     Route: 065
     Dates: start: 201501
  7. ETOPOSIDE. [Suspect]
     Active Substance: ETOPOSIDE
     Indication: TESTICULAR GERM CELL TUMOUR
     Dosage: UNK, 4 CYCLES
     Route: 065
     Dates: start: 201501
  8. ETOPOSIDE. [Suspect]
     Active Substance: ETOPOSIDE
     Dosage: UNK, 2 CYCLES
     Route: 065
     Dates: start: 201509, end: 201511
  9. GEMCITABINE [Suspect]
     Active Substance: GEMCITABINE\GEMCITABINE HYDROCHLORIDE
     Indication: TESTICULAR GERM CELL TUMOUR
     Dosage: UNK
     Route: 065
     Dates: start: 201601

REACTIONS (6)
  - Vomiting [Unknown]
  - Nausea [Unknown]
  - Death [Fatal]
  - Disease progression [Unknown]
  - Febrile neutropenia [Unknown]
  - Pyrexia [Unknown]

NARRATIVE: CASE EVENT DATE: 201601
